FAERS Safety Report 19721941 (Version 1)
Quarter: 2021Q3

REPORT INFORMATION
  Report Type: Spontaneous
  Country: BE (occurrence: BE)
  Receive Date: 20210819
  Receipt Date: 20210819
  Transmission Date: 20211014
  Serious: Yes (Other)
  Sender: FDA-Public Use
  Company Number: BE-ROCHE-2888890

PATIENT
  Sex: Male

DRUGS (1)
  1. MABTHERA [Suspect]
     Active Substance: RITUXIMAB
     Indication: FOLLICULAR LYMPHOMA
     Route: 065

REACTIONS (2)
  - Drug-induced liver injury [Unknown]
  - Hepatotoxicity [Unknown]
